FAERS Safety Report 16370586 (Version 2)
Quarter: 2019Q3

REPORT INFORMATION
  Report Type: Spontaneous
  Country: US (occurrence: US)
  Receive Date: 20190530
  Receipt Date: 20190702
  Transmission Date: 20191004
  Serious: Yes (Life-Threatening, Hospitalization, Other)
  Sender: FDA-Public Use
  Company Number: PHEH2019US022652

PATIENT
  Age: 15 Year
  Sex: Male
  Weight: 97.5 kg

DRUGS (1)
  1. KYMRIAH [Suspect]
     Active Substance: TISAGENLECLEUCEL
     Indication: B-CELL LYMPHOMA REFRACTORY
     Dosage: 17 ML, UNK
     Route: 065
     Dates: start: 20190515

REACTIONS (21)
  - Headache [Recovered/Resolved]
  - Blood fibrinogen increased [Unknown]
  - Platelet count decreased [Unknown]
  - Blood immunoglobulin G decreased [Unknown]
  - Red blood cell count decreased [Unknown]
  - White blood cell count decreased [Unknown]
  - C-reactive protein increased [Recovering/Resolving]
  - Cytokine release syndrome [Recovered/Resolved]
  - Pyrexia [Recovered/Resolved]
  - Fibrin D dimer increased [Unknown]
  - Hypotension [Recovering/Resolving]
  - Aspartate aminotransferase increased [Unknown]
  - Neurotoxicity [Recovered/Resolved]
  - Peripheral coldness [Unknown]
  - Activated partial thromboplastin time prolonged [Unknown]
  - Serum ferritin increased [Not Recovered/Not Resolved]
  - Alanine aminotransferase increased [Unknown]
  - Blood potassium decreased [Unknown]
  - Blood alkaline phosphatase decreased [Unknown]
  - Chills [Unknown]
  - Haemoglobin decreased [Unknown]

NARRATIVE: CASE EVENT DATE: 20190515
